FAERS Safety Report 8882563 (Version 1)
Quarter: 2012Q4

REPORT INFORMATION
  Report Type: 
  Country: GB (occurrence: GB)
  Receive Date: 20121102
  Receipt Date: 20121102
  Transmission Date: 20130627
  Serious: Yes (Other)
  Sender: FDA-Public Use
  Company Number: GB-MYLANLABS-2012S1022082

PATIENT
  Age: 27 Year
  Sex: Male

DRUGS (2)
  1. KETAMINE [Suspect]
     Indication: INTENTIONAL DRUG MISUSE
     Dosage: }1 g/day over 12-month period
     Route: 065
  2. RITONAVIR [Interacting]
     Indication: HIV INFECTION
     Route: 065

REACTIONS (5)
  - Biliary dilatation [Recovering/Resolving]
  - Liver function test abnormal [Recovered/Resolved]
  - Hepatobiliary disease [Recovering/Resolving]
  - Intentional drug misuse [Recovered/Resolved]
  - Drug interaction [Recovered/Resolved]
